FAERS Safety Report 7228281-X (Version None)
Quarter: 2011Q1

REPORT INFORMATION
  Report Type: 
  Country: None (occurrence: None)
  Receive Date: 20110114
  Receipt Date: 20110111
  Transmission Date: 20110831
  Serious: Yes (Death)
  Sender: FDA-Public Use
  Company Number: JP-PFIZER INC-2010151318

PATIENT
  Age: 69 Year
  Sex: Female

DRUGS (10)
  1. BAKTAR [Concomitant]
     Dosage: UNK
     Route: 048
  2. TAKEPRON [Concomitant]
     Dosage: UNK
     Route: 048
  3. SENNOSIDES [Concomitant]
     Dosage: UNK
     Route: 048
  4. ACETYLCYSTEINE [Concomitant]
     Dosage: UNK
     Dates: start: 20100610
  5. ONE-ALPHA [Concomitant]
     Dosage: UNK
     Route: 048
  6. SILDENAFIL CITRATE [Suspect]
     Indication: PULMONARY HYPERTENSION
     Dosage: 60 MG/DAY
     Route: 048
     Dates: start: 20100624, end: 20100729
  7. PREDNISOLONE [Concomitant]
     Dosage: UNK
     Route: 048
  8. CLARITHROMYCIN [Concomitant]
     Dosage: UNK
     Route: 048
  9. WARFARIN [Concomitant]
     Indication: PULMONARY HYPERTENSION
     Dosage: UNK
     Route: 048
  10. BENZALIN [Concomitant]
     Dosage: UNK
     Route: 048

REACTIONS (1)
  - DEATH [None]
